FAERS Safety Report 21252126 (Version 1)
Quarter: 2022Q3

REPORT INFORMATION
  Report Type: Spontaneous
  Country: AU (occurrence: AU)
  Receive Date: 20220825
  Receipt Date: 20220825
  Transmission Date: 20221026
  Serious: Yes (Life-Threatening, Other)
  Sender: FDA-Public Use
  Company Number: AU-SUN PHARMACEUTICAL INDUSTRIES LTD-2022R1-351973

PATIENT
  Age: 4 Decade
  Sex: Female

DRUGS (1)
  1. AMITRIPTYLINE [Suspect]
     Active Substance: AMITRIPTYLINE
     Indication: Product used for unknown indication
     Dosage: 10 GRAM (UP TO 128 MG/KG)
     Route: 048

REACTIONS (4)
  - Intentional overdose [Unknown]
  - Toxicity to various agents [Unknown]
  - Ventricular fibrillation [Recovered/Resolved]
  - Ventricular arrhythmia [Recovered/Resolved]
